FAERS Safety Report 9849499 (Version 1)
Quarter: 2014Q1

REPORT INFORMATION
  Report Type: Spontaneous
  Country: US (occurrence: None)
  Receive Date: 20140127
  Receipt Date: 20140127
  Transmission Date: 20141002
  Serious: Yes (Other)
  Sender: FDA-Public Use
  Company Number: None

PATIENT
  Age: 60 Year
  Sex: Male

DRUGS (1)
  1. STIVARGA 40 MG BAYER [Suspect]
     Indication: COLON CANCER
     Dosage: 120MG?DAO;U X 21 DAUS, OFF 7 DAYS?PO
     Route: 048
     Dates: start: 20130529

REACTIONS (2)
  - Gastrointestinal motility disorder [None]
  - Movement disorder [None]
